FAERS Safety Report 5399891-X (Version None)
Quarter: 2007Q3

REPORT INFORMATION
  Report Type: 
  Country: None (occurrence: None)
  Receive Date: 20070730
  Receipt Date: 20070725
  Transmission Date: 20080115
  Serious: Yes (Life-Threatening)
  Sender: FDA-Public Use
  Company Number: PHMT2007CA01634

PATIENT
  Age: 60 Year
  Sex: Female
  Weight: 63.492 kg

DRUGS (1)
  1. RECLAST [Suspect]
     Dosage: 5 MG
     Dates: start: 20060529

REACTIONS (2)
  - ANAPHYLACTIC SHOCK [None]
  - RESPIRATORY ARREST [None]
